FAERS Safety Report 21285217 (Version 5)
Quarter: 2022Q4

REPORT INFORMATION
  Report Type: Report from Study
  Country: CN (occurrence: None)
  Receive Date: 20220902
  Receipt Date: 20221108
  Transmission Date: 20230113
  Serious: Yes (Hospitalization)
  Sender: FDA-Public Use
  Company Number: CN-ROCHE-3168962

PATIENT
  Sex: Female
  Weight: 69.7 kg

DRUGS (10)
  1. VEMURAFENIB [Suspect]
     Active Substance: VEMURAFENIB
     Indication: Neoplasm
     Dosage: 720MG/TIME
     Route: 048
     Dates: start: 20220301, end: 20220303
  2. VEMURAFENIB [Suspect]
     Active Substance: VEMURAFENIB
     Route: 048
     Dates: start: 20220310, end: 20220415
  3. VEMURAFENIB [Suspect]
     Active Substance: VEMURAFENIB
     Dosage: 480MG/TIME
     Route: 048
     Dates: start: 20220502, end: 20220505
  4. VEMURAFENIB [Suspect]
     Active Substance: VEMURAFENIB
     Route: 048
     Dates: start: 20220627, end: 20220706
  5. VEMURAFENIB [Suspect]
     Active Substance: VEMURAFENIB
     Route: 048
     Dates: start: 20220712, end: 20220721
  6. VEMURAFENIB [Suspect]
     Active Substance: VEMURAFENIB
     Dosage: 480MG/TIME
     Route: 048
     Dates: start: 20220728, end: 20220802
  7. VEMURAFENIB [Suspect]
     Active Substance: VEMURAFENIB
     Route: 048
     Dates: start: 20220809, end: 20220815
  8. VEMURAFENIB [Suspect]
     Active Substance: VEMURAFENIB
     Dosage: 480 MG / TIME
     Route: 048
     Dates: start: 20220825
  9. VEMURAFENIB [Suspect]
     Active Substance: VEMURAFENIB
     Route: 048
     Dates: start: 20220914
  10. CANDESARTAN CILEXETIL [Concomitant]
     Active Substance: CANDESARTAN CILEXETIL
     Indication: Hypertension
     Route: 048

REACTIONS (1)
  - Blood creatine phosphokinase increased [Not Recovered/Not Resolved]

NARRATIVE: CASE EVENT DATE: 20220425
